FAERS Safety Report 5356686-0 (Version None)
Quarter: 2007Q2

REPORT INFORMATION
  Report Type: 
  Country: None (occurrence: None)
  Receive Date: 20070611
  Receipt Date: 20070525
  Transmission Date: 20071010
  Serious: Yes (Other)
  Sender: FDA-Public Use
  Company Number: 16680

PATIENT
  Age: 69 Year
  Sex: Female
  Weight: 84.8226 kg

DRUGS (13)
  1. LEUCOVORIN CALCIUM [Suspect]
     Indication: COLON CANCER
     Dosage: 400 MG/M2 FORTNIGHTLY IV
     Route: 042
     Dates: start: 20070110, end: 20070110
  2. LEUCOVORIN CALCIUM [Suspect]
     Indication: COLON CANCER
     Dosage: 400 MG/M2 FORTNIGHTLY IV
     Route: 042
     Dates: start: 20070124, end: 20070124
  3. OXALIPLATIN [Suspect]
     Indication: COLON CANCER
     Dosage: 85 MG/M2 FORTNIGHTLY IV
     Route: 042
     Dates: start: 20070110, end: 20070110
  4. OXALIPLATIN [Suspect]
     Indication: COLON CANCER
     Dosage: 85 MG/M2 FORTNIGHTLY IV
     Route: 042
     Dates: start: 20070124, end: 20070124
  5. 5-FU /00098801/. MFR: NOT SPECIFIED [Suspect]
     Indication: COLON CANCER
     Dosage: 400 MG/M2 FORTNIGHTLY IV
     Route: 042
     Dates: start: 20070110, end: 20070110
  6. 5-FU /00098801/. MFR: NOT SPECIFIED [Suspect]
     Indication: COLON CANCER
     Dosage: 2400 MG/M2 FORTNIGHTLY IV
     Route: 042
     Dates: start: 20070110, end: 20070112
  7. 5-FU /00098801/. MFR. NOT SPECIFIED [Suspect]
     Indication: COLON CANCER
     Dosage: 85 MG/M2 FORTNIGHTLY IV
     Route: 042
     Dates: start: 20070124, end: 20070124
  8. 5-FU /00098801/. MFR: NOT SPECIFIED [Suspect]
     Indication: COLON CANCER
     Dosage: 2400 MG/M2 FORTNIGHTLY IV
     Route: 042
     Dates: start: 20070124, end: 20070126
  9. ATENOLOL [Concomitant]
  10. LISINOPRIL [Concomitant]
  11. HYDROCHLOROTHIAZIDE [Concomitant]
  12. LIPITOR [Concomitant]
  13. VERAPAMIL [Concomitant]

REACTIONS (11)
  - ANXIETY [None]
  - CHEST PAIN [None]
  - DIARRHOEA [None]
  - DYSPNOEA [None]
  - NAUSEA [None]
  - PARAESTHESIA [None]
  - PARAESTHESIA ORAL [None]
  - THROAT IRRITATION [None]
  - THROAT TIGHTNESS [None]
  - URTICARIA [None]
  - VOMITING [None]
